FAERS Safety Report 6243756-8 (Version None)
Quarter: 2009Q2

REPORT INFORMATION
  Report Type: 
  Country: None (occurrence: None)
  Receive Date: 20090624
  Receipt Date: 20090622
  Transmission Date: 20091009
  Serious: Yes (Death)
  Sender: FDA-Public Use
  Company Number: FR-AVENTIS-200912645EU

PATIENT
  Age: 73 Year
  Sex: Female
  Weight: 60 kg

DRUGS (1)
  1. ENOXAPARIN SODIUM [Suspect]
     Route: 042
     Dates: start: 20090209, end: 20090210

REACTIONS (1)
  - CARDIOGENIC SHOCK [None]
